FAERS Safety Report 6079969-8 (Version None)
Quarter: 2009Q1

REPORT INFORMATION
  Report Type: 
  Country: None (occurrence: None)
  Receive Date: 20090217
  Receipt Date: 20081030
  Transmission Date: 20090719
  Serious: No
  Sender: FDA-Public Use
  Company Number: A0754275A

PATIENT
  Sex: Male

DRUGS (1)
  1. COREG CR [Suspect]
     Route: 048
     Dates: end: 20081001

REACTIONS (5)
  - ABDOMINAL PAIN [None]
  - BACK PAIN [None]
  - BRONCHITIS [None]
  - MUSCULOSKELETAL CHEST PAIN [None]
  - PAIN [None]
